FAERS Safety Report 10309321 (Version 1)
Quarter: 2014Q3

REPORT INFORMATION
  Report Type: Spontaneous
  Country: US (occurrence: US)
  Receive Date: 20140716
  Receipt Date: 20140716
  Transmission Date: 20150326
  Serious: Yes (Other)
  Sender: FDA-Public Use
  Company Number: US-ABBVIE-14P-163-1259889-00

PATIENT
  Sex: Female

DRUGS (1)
  1. LUPRON DEPOT [Suspect]
     Active Substance: LEUPROLIDE ACETATE
     Indication: UTERINE LEIOMYOMA
     Dates: start: 201406

REACTIONS (9)
  - Diarrhoea [Unknown]
  - Hot flush [Unknown]
  - Epistaxis [Unknown]
  - Amnesia [Unknown]
  - Visual impairment [Not Recovered/Not Resolved]
  - Vaginal haemorrhage [Unknown]
  - Insomnia [Unknown]
  - Thrombosis [Recovered/Resolved]
  - Fatigue [Unknown]
